FAERS Safety Report 5193681-9 (Version None)
Quarter: 2006Q4

REPORT INFORMATION
  Report Type: 
  Country: None (occurrence: None)
  Receive Date: 20061221
  Receipt Date: 20061213
  Transmission Date: 20070319
  Serious: Yes (Other)
  Sender: FDA-Public Use
  Company Number: 233334

PATIENT
  Age: 73 Year
  Sex: Female

DRUGS (7)
  1. LUCENTIS [Suspect]
     Indication: MACULAR DEGENERATION
     Dosage: 0.5 MG, 1/MONTH, INTRAVITREAL
     Dates: start: 20061102
  2. VICODIN [Concomitant]
  3. LORAZEPAM [Concomitant]
  4. ELAVIL [Concomitant]
  5. LASIX [Concomitant]
  6. DILTIAZEM HCL [Concomitant]
  7. THEOPHYLLINE [Concomitant]

REACTIONS (5)
  - CORNEAL STRIAE [None]
  - EYE PAIN [None]
  - INFLAMMATION [None]
  - IRITIS [None]
  - UVEITIS [None]
